FAERS Safety Report 5036265-5 (Version None)
Quarter: 2006Q2

REPORT INFORMATION
  Report Type: 
  Country: None (occurrence: None)
  Receive Date: 20060601
  Receipt Date: 20060426
  Transmission Date: 20061013
  Serious: No
  Sender: FDA-Public Use
  Company Number: US200605000204

PATIENT
  Age: 60 Year
  Sex: Female

DRUGS (7)
  1. CYMBALTA [Suspect]
     Dosage: 30 MG
  2. DOXITIN (DOXYCYLINE) [Concomitant]
  3. CLONOPIN [Concomitant]
  4. FLEXERIL [Concomitant]
  5. AMBIEN [Concomitant]
  6. VALTREX [Concomitant]
  7. NEURONTIN [Concomitant]

REACTIONS (1)
  - CYSTITIS [None]
